FAERS Safety Report 6332506-2 (Version None)
Quarter: 2009Q3

REPORT INFORMATION
  Report Type: 
  Country: None (occurrence: None)
  Receive Date: 20090828
  Receipt Date: 20081209
  Transmission Date: 20100115
  Serious: No
  Sender: FDA-Public Use
  Company Number: A0759726A

PATIENT
  Age: 32 Year
  Sex: Male

DRUGS (2)
  1. MALARONE [Suspect]
     Route: 048
     Dates: end: 20081206
  2. NO CONCURRENT MEDICATION [Concomitant]

REACTIONS (6)
  - ADVERSE DRUG REACTION [None]
  - FEELING JITTERY [None]
  - MOVEMENT DISORDER [None]
  - SCREAMING [None]
  - SLEEP DISORDER [None]
  - SLEEP TALKING [None]
